FAERS Safety Report 8884299 (Version 2)
Quarter: 2014Q2

REPORT INFORMATION
  Report Type: Spontaneous
  Country: US (occurrence: US)
  Receive Date: 20121102
  Receipt Date: 20140610
  Transmission Date: 20141212
  Serious: No
  Sender: FDA-Public Use
  Company Number: US-ASTRAZENECA-2012SE20750

PATIENT
  Age: 63 Year
  Sex: Female
  Weight: 93.9 kg

DRUGS (7)
  1. CRESTOR [Suspect]
     Indication: BLOOD CHOLESTEROL INCREASED
     Route: 048
  2. METOPROLOL-UNSPECIFIED [Suspect]
     Indication: CARDIAC DISORDER
     Route: 048
  3. METFORMIN [Concomitant]
     Indication: DIABETES MELLITUS
     Route: 048
  4. GLYBURIDE [Concomitant]
     Indication: DIABETES MELLITUS
     Dosage: 2 TABLETS BID
     Route: 048
  5. ASPIRIN [Concomitant]
     Dosage: UNKNOWN UNK
     Route: 048
  6. SYNTHROID [Concomitant]
     Indication: THYROID DISORDER
     Dosage: UNKNOWN DAILY
     Route: 048
     Dates: start: 2003
  7. JANUVIA [Concomitant]
     Indication: DIABETES MELLITUS
     Dosage: UNKNOWN UNK
     Route: 048

REACTIONS (4)
  - Nasopharyngitis [Unknown]
  - Nervousness [Not Recovered/Not Resolved]
  - Fatigue [Not Recovered/Not Resolved]
  - Drug dose omission [Not Recovered/Not Resolved]
